FAERS Safety Report 21724235 (Version 1)
Quarter: 2022Q4

REPORT INFORMATION
  Report Type: Spontaneous
  Country: US (occurrence: US)
  Receive Date: 20221213
  Receipt Date: 20221213
  Transmission Date: 20230113
  Serious: No
  Sender: FDA-Public Use
  Company Number: US-ALLERGAN-2232288US

PATIENT
  Age: 60 Year
  Sex: Male

DRUGS (1)
  1. DURYSTA [Suspect]
     Active Substance: BIMATOPROST
     Indication: Intraocular pressure increased
     Dosage: 0.01 MG, SINGLE
     Route: 031
     Dates: start: 20220711, end: 20220711

REACTIONS (4)
  - Photosensitivity reaction [Not Recovered/Not Resolved]
  - Anterior chamber cell [Not Recovered/Not Resolved]
  - Corneal disorder [Not Recovered/Not Resolved]
  - Device physical property issue [Unknown]
